FAERS Safety Report 4976077-1 (Version None)
Quarter: 2006Q2

REPORT INFORMATION
  Report Type: 
  Country: None (occurrence: None)
  Receive Date: 20060412
  Receipt Date: 20060329
  Transmission Date: 20061013
  Serious: Yes (Disabling)
  Sender: FDA-Public Use
  Company Number: 8015562

PATIENT
  Age: 6 Year
  Sex: Male
  Weight: 20 kg

DRUGS (4)
  1. KEPPRA [Suspect]
     Indication: LENNOX-GASTAUT SYNDROME
     Dosage: 250 MG 3/D PO
     Route: 048
     Dates: start: 20060216
  2. MICROPAKINE [Concomitant]
  3. RIVOTRIL [Concomitant]
  4. LAMICTAL [Concomitant]

REACTIONS (6)
  - ABNORMAL BEHAVIOUR [None]
  - APHASIA [None]
  - COGNITIVE DISORDER [None]
  - DISORIENTATION [None]
  - MENTAL IMPAIRMENT [None]
  - SOMNOLENCE [None]
